FAERS Safety Report 9677797 (Version 1)
Quarter: 2013Q4

REPORT INFORMATION
  Report Type: Spontaneous
  Country: US (occurrence: US)
  Receive Date: 20131108
  Receipt Date: 20131108
  Transmission Date: 20140711
  Serious: Yes (Hospitalization, Other)
  Sender: FDA-Public Use
  Company Number: US-TEVA-443283USA

PATIENT
  Age: 31 Year
  Sex: Male

DRUGS (2)
  1. METFORMIN [Suspect]
     Indication: SUICIDE ATTEMPT
     Dosage: 50G
     Route: 048
  2. ATRIPLA [Concomitant]
     Indication: HIV INFECTION
     Route: 065

REACTIONS (4)
  - Hypoglycaemia [Recovered/Resolved]
  - Lactic acidosis [Recovered/Resolved]
  - Renal impairment [Unknown]
  - Intentional overdose [Recovering/Resolving]
